FAERS Safety Report 13039552 (Version 1)
Quarter: 2016Q4

REPORT INFORMATION
  Report Type: Spontaneous
  Country: DE (occurrence: DE)
  Receive Date: 20161219
  Receipt Date: 20161219
  Transmission Date: 20170207
  Serious: Yes (Death, Other)
  Sender: FDA-Public Use
  Company Number: DE-BAYER-2016-239608

PATIENT
  Sex: Female

DRUGS (2)
  1. ULTRAVIST [Suspect]
     Active Substance: IOPROMIDE
     Indication: UROGRAM
     Dosage: UNK, ONCE
     Route: 042
     Dates: start: 2011, end: 2011
  2. CIPROBAY 250 MG [Suspect]
     Active Substance: CIPROFLOXACIN
     Dosage: UNK

REACTIONS (3)
  - Pulmonary oedema [Fatal]
  - Myocardial infarction [Fatal]
  - Drug hypersensitivity [None]

NARRATIVE: CASE EVENT DATE: 2011
